FAERS Safety Report 25831841 (Version 1)
Quarter: 2025Q3

REPORT INFORMATION
  Report Type: Spontaneous
  Country: US (occurrence: None)
  Receive Date: 20250921
  Receipt Date: 20250921
  Transmission Date: 20251020
  Serious: Yes (Life-Threatening, Hospitalization, Disabling)
  Sender: FDA-CTU
  Company Number: None

PATIENT
  Age: 46 Year
  Sex: Female
  Weight: 107.1 kg

DRUGS (1)
  1. EPINEPHRINE [Suspect]
     Active Substance: EPINEPHRINE
     Indication: Angioedema
     Dates: start: 20201115, end: 20201115

REACTIONS (5)
  - Incorrect route of product administration [None]
  - Myocardial infarction [None]
  - Ischaemic stroke [None]
  - Coronary artery occlusion [None]
  - Disease complication [None]

NARRATIVE: CASE EVENT DATE: 20201115
